FAERS Safety Report 23529881 (Version 2)
Quarter: 2024Q1

REPORT INFORMATION
  Report Type: Report from Study
  Country: IL (occurrence: IL)
  Receive Date: 20240216
  Receipt Date: 20240224
  Transmission Date: 20240409
  Serious: Yes (Hospitalization, Other)
  Sender: FDA-Public Use
  Company Number: IL-AMGEN-ISRSL2023125336

PATIENT
  Age: 88 Year
  Sex: Male

DRUGS (2)
  1. NPLATE [Suspect]
     Active Substance: ROMIPLOSTIM
     Indication: Immune thrombocytopenia
     Dosage: 750 MICROGRAM, QWK (3 VIALS EVERY 7 DAYS)
     Route: 058
     Dates: start: 20230312
  2. NPLATE [Suspect]
     Active Substance: ROMIPLOSTIM
     Dosage: 750 MICROGRAM, QWK (3 VIALS EVERY 7 DAYS)750 MICROGRAM, QWK (3 VIALS EVERY 7 DAYS)
     Route: 058

REACTIONS (6)
  - Platelet count increased [Unknown]
  - Haemorrhage [Unknown]
  - Secretion discharge [Unknown]
  - Drug ineffective [Unknown]
  - Fatigue [Unknown]
  - Asthenia [Unknown]

NARRATIVE: CASE EVENT DATE: 20230101
